FAERS Safety Report 5088388-2 (Version None)
Quarter: 2006Q3

REPORT INFORMATION
  Report Type: 
  Country: None (occurrence: None)
  Receive Date: 20060821
  Receipt Date: 20060808
  Transmission Date: 20061208
  Serious: Yes (Hospitalization)
  Sender: FDA-Public Use
  Company Number: 2006001580

PATIENT
  Age: 71 Year
  Sex: Male

DRUGS (3)
  1. ERLOTINIB                     (TABLET) [Suspect]
     Indication: NEOPLASM MALIGNANT
     Dosage: 150 MG (QD),ORAL
     Route: 048
     Dates: start: 20060727
  2. CISPLATIN [Suspect]
     Indication: NEOPLASM MALIGNANT
     Dosage: 75 MG/M^2, INTRAVENOUS
     Route: 042
  3. DOCETAXEL                 (DOCETAXEL) (INJECTION FOR INFUSION) [Suspect]
     Indication: NEOPLASM MALIGNANT
     Dosage: 60 MG/M^2, INTRAVENOUS
     Route: 042
     Dates: start: 20060727

REACTIONS (4)
  - DIARRHOEA [None]
  - MENTAL STATUS CHANGES [None]
  - NECK PAIN [None]
  - RADICAL NECK DISSECTION [None]
